FAERS Safety Report 23885771 (Version 1)
Quarter: 2024Q2

REPORT INFORMATION
  Report Type: Spontaneous
  Country: CN (occurrence: CN)
  Receive Date: 20240522
  Receipt Date: 20240522
  Transmission Date: 20240715
  Serious: Yes (Life-Threatening, Hospitalization, Other)
  Sender: FDA-Public Use
  Company Number: CN-FreseniusKabi-FK202407775

PATIENT
  Age: 82 Year
  Sex: Male
  Weight: 45 kg

DRUGS (6)
  1. FAT EMULSION NOS [Suspect]
     Active Substance: EGG PHOSPHOLIPIDS\SAFFLOWER OIL\SOYBEAN OIL
     Indication: Product used for unknown indication
     Dosage: FORM OF ADMIN: INFUSION
     Route: 041
     Dates: start: 20230520, end: 20230520
  2. FAT EMULSION NOS [Suspect]
     Active Substance: EGG PHOSPHOLIPIDS\SAFFLOWER OIL\SOYBEAN OIL
     Dosage: FORM OF ADMIN: INFUSION
     Route: 041
     Dates: start: 20230521, end: 20230521
  3. RO-0622 [Concomitant]
     Active Substance: RO-0622
     Indication: Antiviral treatment
  4. RO-0622 [Concomitant]
     Active Substance: RO-0622
     Indication: Productive cough
  5. RO-0622 [Concomitant]
     Active Substance: RO-0622
     Indication: Infection
  6. RO-0622 [Concomitant]
     Active Substance: RO-0622
     Indication: Symptomatic treatment

REACTIONS (1)
  - Fat embolism syndrome [Recovering/Resolving]

NARRATIVE: CASE EVENT DATE: 20230521
